FAERS Safety Report 20720094 (Version 2)
Quarter: 2022Q2

REPORT INFORMATION
  Report Type: Spontaneous
  Country: US (occurrence: US)
  Receive Date: 20220418
  Receipt Date: 20220519
  Transmission Date: 20220721
  Serious: Yes (Hospitalization)
  Sender: FDA-Public Use
  Company Number: US-009507513-2204USA004252

PATIENT
  Age: 52 Year
  Sex: Female
  Weight: 146.51 kg

DRUGS (2)
  1. STEGLATRO [Suspect]
     Active Substance: ERTUGLIFLOZIN PIDOLATE
     Indication: Type 2 diabetes mellitus
     Dosage: 5 MILLIGRAM, WEEKLY
     Route: 048
     Dates: start: 20190117, end: 20190211
  2. STEGLATRO [Suspect]
     Active Substance: ERTUGLIFLOZIN PIDOLATE
     Dosage: 5 MILLIGRAM, INCREASED TO DAILY DOSING
     Route: 048
     Dates: start: 20190212, end: 20190326

REACTIONS (3)
  - Cellulitis [Unknown]
  - Abscess limb [Unknown]
  - Fournier^s gangrene [Unknown]

NARRATIVE: CASE EVENT DATE: 20190325
